FAERS Safety Report 22382812 (Version 1)
Quarter: 2023Q2

REPORT INFORMATION
  Report Type: Spontaneous
  Country: US (occurrence: US)
  Receive Date: 20230530
  Receipt Date: 20230530
  Transmission Date: 20230722
  Serious: No
  Sender: FDA-Public Use
  Company Number: US-STERISCIENCE B.V.-2022-ST-000343

PATIENT
  Age: 47 Year
  Sex: Female

DRUGS (6)
  1. METOPROLOL [Suspect]
     Active Substance: METOPROLOL
     Indication: Coronary artery disease
     Dosage: UNK
  2. METOPROLOL [Suspect]
     Active Substance: METOPROLOL
     Indication: Ventricular extrasystoles
  3. ATORVASTATIN [Suspect]
     Active Substance: ATORVASTATIN
     Indication: Coronary artery disease
     Dosage: UNK
  4. ATORVASTATIN [Suspect]
     Active Substance: ATORVASTATIN
     Indication: Ventricular extrasystoles
  5. ASPIRIN [Suspect]
     Active Substance: ASPIRIN
     Indication: Coronary artery disease
     Dosage: UNK
  6. ASPIRIN [Suspect]
     Active Substance: ASPIRIN
     Indication: Ventricular extrasystoles

REACTIONS (1)
  - Maternal exposure during pregnancy [Unknown]
